FAERS Safety Report 12569292 (Version 1)
Quarter: 2016Q3

REPORT INFORMATION
  Report Type: Spontaneous
  Country: US (occurrence: US)
  Receive Date: 20160719
  Receipt Date: 20160719
  Transmission Date: 20161109
  Serious: No
  Sender: FDA-Public Use
  Company Number: US-TAKEDA-2016MPI006290

PATIENT
  Age: 83 Year
  Sex: Male

DRUGS (6)
  1. THALOMID [Suspect]
     Active Substance: THALIDOMIDE
     Dosage: 100 MG, QD
     Route: 048
     Dates: start: 201506, end: 2015
  2. THALOMID [Suspect]
     Active Substance: THALIDOMIDE
     Dosage: 150 MG, QD
     Route: 048
     Dates: start: 201508, end: 2015
  3. THALOMID [Suspect]
     Active Substance: THALIDOMIDE
     Indication: PLASMA CELL MYELOMA
     Dosage: 50 MG, QD
     Route: 048
     Dates: start: 20150417, end: 2015
  4. DEXAMETHASONE. [Concomitant]
     Active Substance: DEXAMETHASONE
     Indication: PRODUCT USED FOR UNKNOWN INDICATION
     Dosage: 20 MG, 1/WEEK
     Route: 048
     Dates: start: 20150703
  5. VELCADE [Suspect]
     Active Substance: BORTEZOMIB
     Indication: PLASMA CELL MYELOMA
     Dosage: 1.3 MG/M2, 1/WEEK
     Route: 058
     Dates: start: 20150403, end: 20150712
  6. THALOMID [Suspect]
     Active Substance: THALIDOMIDE
     Dosage: 100 MG, QD
     Route: 048
     Dates: start: 20150925

REACTIONS (2)
  - Tremor [Recovered/Resolved]
  - Hypoaesthesia [Recovered/Resolved]

NARRATIVE: CASE EVENT DATE: 20150901
